FAERS Safety Report 7880998-X (Version None)
Quarter: 2011Q4

REPORT INFORMATION
  Report Type: 
  Country: None (occurrence: None)
  Receive Date: 20111101
  Receipt Date: 20111024
  Transmission Date: 20120403
  Serious: No
  Sender: FDA-Public Use
  Company Number: US-B.I. PHARMACEUTICALS,INC./RIDGEFIELD-2011-BP-24870BP

PATIENT
  Sex: Male

DRUGS (5)
  1. PRADAXA [Suspect]
     Dosage: 300 MG
     Route: 048
     Dates: start: 20111001
  2. FLONASE [Concomitant]
  3. DIGOXIN [Concomitant]
     Dosage: 0.25 MG
  4. LOVASTATIN [Concomitant]
  5. AVODART [Concomitant]

REACTIONS (1)
  - DYSGEUSIA [None]
